FAERS Safety Report 20376612 (Version 3)
Quarter: 2022Q1

REPORT INFORMATION
  Report Type: Report from Study
  Country: FR (occurrence: None)
  Receive Date: 20220125
  Receipt Date: 20220228
  Transmission Date: 20220423
  Serious: Yes (Death, Life-Threatening, Hospitalization, Other)
  Sender: FDA-Public Use
  Company Number: 2021A844222

PATIENT
  Age: 81 Year
  Sex: Male

DRUGS (16)
  1. CERALASERTIB [Suspect]
     Active Substance: CERALASERTIB
     Indication: Non-small cell lung cancer
     Route: 048
     Dates: start: 20210916, end: 20210929
  2. CERALASERTIB [Suspect]
     Active Substance: CERALASERTIB
     Indication: Non-small cell lung cancer
     Route: 048
     Dates: start: 20211013, end: 20211026
  3. DURVALUMAB [Suspect]
     Active Substance: DURVALUMAB
     Indication: Non-small cell lung cancer
     Dosage: 1500.0MG ONCE/SINGLE ADMINISTRATION
     Route: 042
     Dates: start: 20210831, end: 20210831
  4. DURVALUMAB [Suspect]
     Active Substance: DURVALUMAB
     Indication: Non-small cell lung cancer
     Dosage: 1500.0MG ONCE/SINGLE ADMINISTRATION
     Route: 042
     Dates: start: 20210930, end: 20210930
  5. DURVALUMAB [Suspect]
     Active Substance: DURVALUMAB
     Indication: Non-small cell lung cancer
     Dosage: 1500.0MG ONCE/SINGLE ADMINISTRATION
     Route: 042
     Dates: start: 20211027, end: 20211027
  6. AUGMENTIN [Concomitant]
     Active Substance: AMOXICILLIN\CLAVULANATE POTASSIUM
     Indication: Infection
     Route: 048
     Dates: start: 20211122, end: 20211129
  7. RED BLOOD CELL TRANSFUSION [Concomitant]
     Indication: Anaemia
     Dosage: 1 BAG QD
     Route: 042
     Dates: start: 20211124, end: 20211125
  8. RED BLOOD CELL TRANSFUSION [Concomitant]
     Indication: Anaemia
     Dosage: 1 BAG ONCE
     Route: 042
     Dates: start: 20211129, end: 20211129
  9. COVID-19 VACCINE [Concomitant]
     Indication: Prophylaxis
     Dosage: 3/YEAR
     Route: 030
     Dates: start: 2021, end: 20210917
  10. PLATELETS [Concomitant]
     Active Substance: HUMAN PLATELET, ALLOGENIC
     Indication: Prophylaxis
     Dosage: 1 BAG TID
     Dates: start: 20211124, end: 20211129
  11. PLATELETS [Concomitant]
     Active Substance: HUMAN PLATELET, ALLOGENIC
     Indication: Epistaxis
     Dosage: 1 BAG TID
     Dates: start: 20211124, end: 20211129
  12. FUROSEMIDE [Concomitant]
     Active Substance: FUROSEMIDE
     Indication: Prophylaxis
     Route: 042
     Dates: start: 20211130, end: 20211201
  13. METHYLPREDNISOLONE [Concomitant]
     Active Substance: METHYLPREDNISOLONE
     Indication: Prophylaxis
     Route: 042
     Dates: start: 20211130, end: 20211205
  14. FILGRASTIM [Concomitant]
     Active Substance: FILGRASTIM
     Indication: Prophylaxis
     Route: 042
     Dates: start: 20211126, end: 20211130
  15. POTASSIUM CHLORURE [Concomitant]
     Indication: Prophylaxis
     Route: 042
     Dates: start: 20211127, end: 20211202
  16. SODIUM CHLORURE [Concomitant]
     Indication: Prophylaxis
     Route: 042
     Dates: start: 20211130, end: 20211204

REACTIONS (3)
  - Pancytopenia [Fatal]
  - Infection [Not Recovered/Not Resolved]
  - Pulmonary embolism [Fatal]

NARRATIVE: CASE EVENT DATE: 20211117
